FAERS Safety Report 4301378-X (Version None)
Quarter: 2004Q1

REPORT INFORMATION
  Report Type: 
  Country: None (occurrence: None)
  Receive Date: 20040223
  Receipt Date: 20030910
  Transmission Date: 20041129
  Serious: Yes (Life-Threatening, Other)
  Sender: FDA-Public Use
  Company Number: US-GLAXOSMITHKLINE-A0425383A

PATIENT
  Age: 56 Year
  Sex: Male

DRUGS (2)
  1. NAVELBINE [Suspect]
     Route: 042
  2. CLOZAPINE [Suspect]
     Dosage: 150MG PER DAY
     Route: 048
     Dates: start: 20010101, end: 20021101

REACTIONS (1)
  - AGRANULOCYTOSIS [None]
